FAERS Safety Report 15899789 (Version 8)
Quarter: 2023Q1

REPORT INFORMATION
  Report Type: Spontaneous
  Country: US (occurrence: US)
  Receive Date: 20190201
  Receipt Date: 20230103
  Transmission Date: 20230417
  Serious: Yes (Other)
  Sender: FDA-Public Use
  Company Number: US-PFIZER INC-2019046064

PATIENT
  Age: 50 Year
  Sex: Male

DRUGS (4)
  1. XELJANZ XR [Suspect]
     Active Substance: TOFACITINIB CITRATE
     Indication: Rheumatoid arthritis
     Dosage: UNK
     Dates: start: 20150101
  2. XELJANZ XR [Suspect]
     Active Substance: TOFACITINIB CITRATE
     Dosage: 11 MG, 1X/DAY
     Route: 048
     Dates: start: 2017
  3. XELJANZ XR [Suspect]
     Active Substance: TOFACITINIB CITRATE
     Dosage: 11 MG, 1X/DAY
     Route: 048
     Dates: start: 20201207, end: 202112
  4. XELJANZ XR [Suspect]
     Active Substance: TOFACITINIB CITRATE
     Dosage: 11 MG, DAILY
     Route: 048
     Dates: start: 202211, end: 2022

REACTIONS (18)
  - Cataract [Unknown]
  - Product dose omission issue [Unknown]
  - Chromaturia [Unknown]
  - Abdominal pain upper [Unknown]
  - Vertigo [Unknown]
  - Ear infection [Unknown]
  - Nasopharyngitis [Unknown]
  - Pain [Not Recovered/Not Resolved]
  - Blood cholesterol abnormal [Unknown]
  - Sinusitis [Recovered/Resolved]
  - Swelling [Unknown]
  - Hypoaesthesia [Unknown]
  - Depression [Unknown]
  - Discouragement [Unknown]
  - Cold sweat [Unknown]
  - Blood cholesterol increased [Unknown]
  - Haematuria [Unknown]
  - Goitre [Unknown]
